FAERS Safety Report 7455306-9 (Version None)
Quarter: 2011Q2

REPORT INFORMATION
  Report Type: 
  Country: None (occurrence: None)
  Receive Date: 20110503
  Receipt Date: 20110429
  Transmission Date: 20111010
  Serious: Yes (Other)
  Sender: FDA-Public Use
  Company Number: PHHY2011FR36714

PATIENT
  Age: 79 Year
  Sex: Male

DRUGS (1)
  1. ZOLEDRONIC ACID [Suspect]
     Indication: OSTEOPOROSIS
     Dosage: 5 MG, 1 DF, PER YEAR
     Route: 042
     Dates: start: 20100101

REACTIONS (1)
  - PROSTATE CANCER [None]
